FAERS Safety Report 6283534-7 (Version None)
Quarter: 2009Q3

REPORT INFORMATION
  Report Type: 
  Country: None (occurrence: None)
  Receive Date: 20090724
  Receipt Date: 20070727
  Transmission Date: 20100115
  Serious: Yes (Hospitalization, Other)
  Sender: FDA-Public Use
  Company Number: US-ASTRAZENECA-2006UW07032

PATIENT
  Age: 604 Month
  Sex: Male
  Weight: 108.9 kg

DRUGS (18)
  1. SEROQUEL [Suspect]
     Indication: ANXIETY
     Dosage: 25, 100, 300 MG
     Route: 048
     Dates: start: 20020823
  2. BUSPAR [Concomitant]
     Dates: start: 20020101, end: 20030112
  3. BUSPAR [Concomitant]
     Route: 048
     Dates: start: 20021021
  4. LAMICTAL [Concomitant]
     Dates: start: 20060101
  5. LISINOPRIL [Concomitant]
     Indication: HYPERTENSION
     Route: 048
     Dates: start: 20010411
  6. ADDERALL 10 [Concomitant]
     Indication: ATTENTION DEFICIT/HYPERACTIVITY DISORDER
     Route: 048
     Dates: start: 20020709
  7. BEXTRA [Concomitant]
     Route: 048
     Dates: start: 20021021
  8. STRATTERA [Concomitant]
     Indication: ATTENTION DEFICIT/HYPERACTIVITY DISORDER
     Route: 048
     Dates: start: 20030219
  9. ASPIRIN [Concomitant]
     Route: 048
     Dates: start: 20030930
  10. NEURONTIN [Concomitant]
     Indication: HEADACHE
     Route: 048
     Dates: start: 20040409
  11. PROTONIX [Concomitant]
     Indication: GASTROOESOPHAGEAL REFLUX DISEASE
     Route: 048
     Dates: start: 20040510
  12. SYNTHROID [Concomitant]
     Indication: HYPOTHYROIDISM
     Route: 048
  13. REGLAN [Concomitant]
     Route: 048
     Dates: start: 20041028
  14. FLOMAX [Concomitant]
     Indication: DYSURIA
     Route: 048
     Dates: start: 20050414
  15. PHENERGAN [Concomitant]
     Indication: NAUSEA
     Route: 048
     Dates: start: 20050517
  16. PHENERGAN [Concomitant]
     Indication: VOMITING
     Route: 048
     Dates: start: 20050517
  17. KEPPRA [Concomitant]
     Route: 048
     Dates: start: 20060420
  18. CREON [Concomitant]
     Indication: PANCREATIC INSUFFICIENCY
     Route: 048
     Dates: start: 20050517

REACTIONS (10)
  - BASEDOW'S DISEASE [None]
  - CHOLECYSTECTOMY [None]
  - DIABETIC FOOT [None]
  - DIABETIC NEUROPATHY [None]
  - GALLBLADDER OPERATION [None]
  - PANCREATIC DISORDER [None]
  - PANCREATIC INSUFFICIENCY [None]
  - PANCREATITIS CHRONIC [None]
  - TYPE 2 DIABETES MELLITUS [None]
  - WEIGHT INCREASED [None]
